FAERS Safety Report 18124047 (Version 1)
Quarter: 2020Q3

REPORT INFORMATION
  Report Type: Spontaneous
  Country: US (occurrence: US)
  Receive Date: 20200807
  Receipt Date: 20200807
  Transmission Date: 20201103
  Serious: No
  Sender: FDA-Public Use
  Company Number: US-PFIZER INC-2020292727

PATIENT
  Age: 63 Year
  Sex: Female
  Weight: 69.85 kg

DRUGS (1)
  1. PREMARIN [Suspect]
     Active Substance: ESTROGENS, CONJUGATED
     Indication: BLADDER PROLAPSE
     Dosage: 1 G (PLACE 1 GRAM VAGINALLY 3 TIMES A WEEK  )
     Route: 067
     Dates: start: 201703

REACTIONS (4)
  - Off label use [Unknown]
  - Visual impairment [Unknown]
  - Product use in unapproved indication [Unknown]
  - Expired product administered [Unknown]

NARRATIVE: CASE EVENT DATE: 201703
